FAERS Safety Report 4877975-X (Version None)
Quarter: 2006Q1

REPORT INFORMATION
  Report Type: 
  Country: None (occurrence: None)
  Receive Date: 20060110
  Receipt Date: 20050831
  Transmission Date: 20060701
  Serious: Yes (Hospitalization, Other)
  Sender: FDA-Public Use
  Company Number: 2006-CZ-00144

PATIENT
  Age: 20 Year
  Sex: Female

DRUGS (1)
  1. PREDNISOLONE TAB [Suspect]
     Dosage: METYL PR.:  750 MG/DAY FOR THREE DAYS; PREDNISOLON ORAL 0.5 MG/KG PER DAY
     Route: 048
     Dates: start: 20011215

REACTIONS (5)
  - DIFFICULTY IN WALKING [None]
  - NECROSIS [None]
  - PEDAL PULSE ABSENT [None]
  - PERIPHERAL ARTERIAL OCCLUSIVE DISEASE [None]
  - TENDON RUPTURE [None]
